FAERS Safety Report 7946849-X (Version None)
Quarter: 2011Q4

REPORT INFORMATION
  Report Type: 
  Country: None (occurrence: None)
  Receive Date: 20111129
  Receipt Date: 20111122
  Transmission Date: 20120403
  Serious: Yes (Other)
  Sender: FDA-Public Use
  Company Number: PHHY2011NL102592

PATIENT
  Sex: Female
  Weight: 58 kg

DRUGS (1)
  1. DICLOFENAC SODIUM [Suspect]
     Indication: TENDONITIS
     Dosage: 1 DF, TID
     Route: 048
     Dates: start: 20110901

REACTIONS (3)
  - HERPES ZOSTER [None]
  - ABDOMINAL PAIN UPPER [None]
  - DYSPEPSIA [None]
